FAERS Safety Report 8207738-9 (Version None)
Quarter: 2012Q1

REPORT INFORMATION
  Report Type: 
  Country: None (occurrence: None)
  Receive Date: 20120313
  Receipt Date: 20120313
  Transmission Date: 20120608
  Serious: Yes (Hospitalization)
  Sender: FDA-Public Use
  Company Number: None

PATIENT
  Age: 91 Year
  Sex: Male
  Weight: 74.2 kg

DRUGS (2)
  1. WARFARIN SODIUM [Suspect]
     Indication: DEEP VEIN THROMBOSIS
     Dosage: 5 MG EVERY DAY PO
     Route: 048
     Dates: start: 20120111, end: 20120308
  2. SULFAMETHOXAZOLE AND TRIMETHOPRIM [Suspect]
     Indication: URINARY TRACT INFECTION
     Dosage: 1 TAB BID PO
     Route: 048
     Dates: end: 20120308

REACTIONS (6)
  - URINARY TRACT INFECTION [None]
  - ESCHERICHIA SEPSIS [None]
  - GASTRIC HAEMORRHAGE [None]
  - RENAL FAILURE ACUTE [None]
  - HYPERNATRAEMIA [None]
  - SYSTEMIC INFLAMMATORY RESPONSE SYNDROME [None]
